FAERS Safety Report 4871834-4 (Version None)
Quarter: 2006Q1

REPORT INFORMATION
  Report Type: 
  Country: None (occurrence: None)
  Receive Date: 20060104
  Receipt Date: 20050218
  Transmission Date: 20060701
  Serious: Yes (Death, Hospitalization)
  Sender: FDA-Public Use
  Company Number: US-MERCK-0502USA02894

PATIENT
  Age: 79 Year
  Sex: Male
  Weight: 100 kg

DRUGS (1)
  1. VIOXX [Suspect]
     Indication: ARTHRITIS
     Route: 048
     Dates: start: 20020101, end: 20040216

REACTIONS (5)
  - ARTERIOSCLEROSIS [None]
  - ARTHROPATHY [None]
  - HYPERTENSION [None]
  - PNEUMONIA [None]
  - RENAL FAILURE CHRONIC [None]
